FAERS Safety Report 6789797-3 (Version None)
Quarter: 2010Q2

REPORT INFORMATION
  Report Type: 
  Country: None (occurrence: None)
  Receive Date: 20100624
  Receipt Date: 20100609
  Transmission Date: 20101027
  Serious: Yes (Hospitalization, Other)
  Sender: FDA-Public Use
  Company Number: US-BAYER-200940834NA

PATIENT
  Age: 28 Year
  Sex: Female
  Weight: 91 kg

DRUGS (3)
  1. YAZ [Suspect]
     Indication: DRUG USE FOR UNKNOWN INDICATION
     Route: 048
     Dates: start: 20070916, end: 20071128
  2. PENICILLIN [Concomitant]
     Dates: start: 20040101
  3. LORAZEPAM [Concomitant]
     Dates: start: 20030101, end: 20090101

REACTIONS (2)
  - CHEST PAIN [None]
  - PULMONARY EMBOLISM [None]
